FAERS Safety Report 8833715 (Version 1)
Quarter: 2012Q4

REPORT INFORMATION
  Report Type: 
  Country: US (occurrence: US)
  Receive Date: 20121010
  Receipt Date: 20121010
  Transmission Date: 20130627
  Serious: Yes (Other)
  Sender: FDA-Public Use
  Company Number: US-ASTRAZENECA-2012SE75624

PATIENT
  Age: 58 Year
  Sex: Male
  Weight: 95.3 kg

DRUGS (5)
  1. NEXIUM [Suspect]
     Indication: GASTROOESOPHAGEAL REFLUX DISEASE
     Route: 048
  2. TARKA [Concomitant]
     Indication: BLOOD PRESSURE ABNORMAL
  3. HYZAAR [Concomitant]
     Indication: DIURETIC THERAPY
     Dosage: DAILY
     Route: 048
  4. SOMA [Concomitant]
     Indication: MUSCLE RELAXANT THERAPY
  5. CODEINE [Concomitant]
     Indication: MUSCLE RELAXANT THERAPY
     Dosage: DAILY
     Route: 048

REACTIONS (6)
  - Diaphragmatic disorder [Unknown]
  - Lung disorder [Unknown]
  - Oxygen saturation decreased [Unknown]
  - Arthritis [Unknown]
  - Nephrolithiasis [Unknown]
  - Weight decreased [Unknown]
